FAERS Safety Report 4949497-9 (Version None)
Quarter: 2006Q1

REPORT INFORMATION
  Report Type: 
  Country: None (occurrence: None)
  Receive Date: 20060127
  Receipt Date: 20050419
  Transmission Date: 20060701
  Serious: Yes (Hospitalization)
  Sender: FDA-Public Use
  Company Number: 05-04-0658

PATIENT
  Age: 45 Year
  Sex: Male

DRUGS (6)
  1. CLOZAPINE [Suspect]
     Indication: SCHIZOPHRENIA
     Dosage: 800MG QD, ORAL
     Route: 048
     Dates: start: 19990601
  2. BENADRYL [Concomitant]
  3. DEPAKOTE [Concomitant]
  4. HALDOL SOLUTAB [Concomitant]
  5. HALDOL DECANOATE (HALOPERIDOL DECANOATE) [Concomitant]
  6. TRAZODONE HCL [Concomitant]

REACTIONS (1)
  - DRUG INEFFECTIVE [None]
